FAERS Safety Report 21475760 (Version 1)
Quarter: 2022Q4

REPORT INFORMATION
  Report Type: Spontaneous
  Country: FR (occurrence: FR)
  Receive Date: 20221019
  Receipt Date: 20221019
  Transmission Date: 20230112
  Serious: Yes (Hospitalization)
  Sender: FDA-Public Use
  Company Number: None

PATIENT
  Age: 74 Year
  Sex: Female
  Weight: 62 kg

DRUGS (15)
  1. METHOTREXATE [Suspect]
     Active Substance: METHOTREXATE
     Indication: Rheumatoid arthritis
     Dates: end: 20220420
  2. INFLIXIMAB [Suspect]
     Active Substance: INFLIXIMAB
     Indication: Rheumatoid arthritis
     Dates: start: 20220329
  3. HYDROCORTISONE [Suspect]
     Active Substance: HYDROCORTISONE
     Indication: Rheumatoid arthritis
     Dates: end: 20220420
  4. VENTOLIN [Concomitant]
     Active Substance: ALBUTEROL SULFATE
     Dosage: STRENGTH 100 MICROGRAMS/DOSE, SUSPENSION FOR INHALATION IN A PRESSURIZED?BOTTLE
  5. FUROSEMIDE [Concomitant]
     Active Substance: FUROSEMIDE
  6. HUMALOG [Concomitant]
     Active Substance: INSULIN LISPRO
  7. ESOMEPRAZOLE [Concomitant]
     Active Substance: ESOMEPRAZOLE
  8. COVERAM [Concomitant]
     Active Substance: AMLODIPINE\PERINDOPRIL
     Dosage: STRENGTH  5MG/10MG
  9. FOLIC ACID [Concomitant]
     Active Substance: FOLIC ACID
     Dosage: STRENGTH 5 MG
  10. MOMETASONE [Concomitant]
     Active Substance: MOMETASONE
  11. INSULIN GLARGINE [Concomitant]
     Active Substance: INSULIN GLARGINE
  12. BECLOMETHASONE DIPROPIONATE [Concomitant]
     Active Substance: BECLOMETHASONE DIPROPIONATE
     Dosage: STRENGTH 250 MICROGRAMS/DOSE, SOLUTION FOR INHALATION IN A PRESSURIZED BOTTLE
  13. POTASSIUM CHLORIDE [Concomitant]
     Active Substance: POTASSIUM CHLORIDE
  14. RILMENIDINE [Concomitant]
     Active Substance: RILMENIDINE
  15. Lamaline [Concomitant]

REACTIONS (2)
  - Pneumocystis jirovecii pneumonia [Recovered/Resolved]
  - Infection in an immunocompromised host [Recovered/Resolved]

NARRATIVE: CASE EVENT DATE: 20220413
